FAERS Safety Report 11934739 (Version 2)
Quarter: 2016Q1

REPORT INFORMATION
  Report Type: Report from Study
  Country: DE (occurrence: DE)
  Receive Date: 20160121
  Receipt Date: 20160222
  Transmission Date: 20160526
  Serious: Yes (Hospitalization)
  Sender: FDA-Public Use
  Company Number: DE-ABBVIE-16K-062-1540047-00

PATIENT
  Age: 70 Year
  Sex: Female

DRUGS (2)
  1. CORTISONE [Concomitant]
     Active Substance: CORTISONE\HYDROCORTISONE
     Indication: PRODUCT USED FOR UNKNOWN INDICATION
  2. HUMIRA [Suspect]
     Active Substance: ADALIMUMAB
     Indication: RHEUMATOID ARTHRITIS
     Route: 058
     Dates: start: 20140724, end: 20151110

REACTIONS (6)
  - Peroneal nerve palsy [Recovered/Resolved]
  - Intervertebral disc protrusion [Recovered/Resolved]
  - Rhinitis [Not Recovered/Not Resolved]
  - Pain in extremity [Recovered/Resolved]
  - Lumbar spinal stenosis [Recovered/Resolved]
  - Back pain [Recovered/Resolved]

NARRATIVE: CASE EVENT DATE: 20151010
